FAERS Safety Report 8397865 (Version 2)
Quarter: 2013Q3

REPORT INFORMATION
  Report Type: Spontaneous
  Country: PE (occurrence: PE)
  Receive Date: 20120209
  Receipt Date: 20130702
  Transmission Date: 20140515
  Serious: Yes (Other)
  Sender: FDA-Public Use
  Company Number: PE-JNJFOC-20120202452

PATIENT
  Age: 25 Year
  Sex: Female
  Weight: 45 kg

DRUGS (5)
  1. REMICADE [Suspect]
     Indication: PSORIASIS
     Dosage: TOTAL NUMBER OF INFUSIONS RECEIVED BY THE PATIENT WERE 6, UNTIL THE DATE23-NOV-2011
     Route: 042
     Dates: start: 20111123
  2. REMICADE [Suspect]
     Indication: PSORIASIS
     Route: 042
     Dates: start: 20100301
  3. REMICADE [Suspect]
     Indication: PSORIASIS
     Route: 042
     Dates: start: 20111020
  4. REMICADE [Suspect]
     Indication: PSORIASIS
     Route: 042
     Dates: start: 20111006
  5. REMICADE [Suspect]
     Indication: PSORIASIS
     Route: 042
     Dates: start: 20100415

REACTIONS (5)
  - Cyanosis [Recovered/Resolved]
  - Hypotension [Recovering/Resolving]
  - Dyspnoea [Recovered/Resolved]
  - Chest pain [Recovered/Resolved]
  - Infusion related reaction [Recovered/Resolved]
